FAERS Safety Report 20110172 (Version 1)
Quarter: 2021Q4

REPORT INFORMATION
  Report Type: Spontaneous
  Country: JP (occurrence: JP)
  Receive Date: 20211124
  Receipt Date: 20211124
  Transmission Date: 20220303
  Serious: Yes (Death, Other)
  Sender: FDA-Public Use
  Company Number: JP-MSD-M2021-24609

PATIENT
  Age: 61 Year

DRUGS (3)
  1. KEYTRUDA [Suspect]
     Active Substance: PEMBROLIZUMAB
     Indication: Head and neck cancer stage IV
     Dosage: 200 MILLIGRAM, Q3W
     Route: 041
     Dates: start: 20210614, end: 2021
  2. FLUOROURACIL [Concomitant]
     Active Substance: FLUOROURACIL
     Dosage: UNK
     Route: 065
     Dates: start: 20210614
  3. CISPLATIN [Concomitant]
     Active Substance: CISPLATIN
     Dosage: UNK
     Route: 065
     Dates: start: 20210614

REACTIONS (1)
  - Malignant neoplasm progression [Fatal]

NARRATIVE: CASE EVENT DATE: 20210101
